FAERS Safety Report 11170364 (Version 1)
Quarter: 2015Q2

REPORT INFORMATION
  Report Type: Report from Study
  Country: AU (occurrence: AU)
  Receive Date: 20150608
  Receipt Date: 20150608
  Transmission Date: 20150821
  Serious: Yes (Death, Other)
  Sender: FDA-Public Use
  Company Number: AU-CELGENE-AUS-2015060333

PATIENT

DRUGS (3)
  1. REVLIMID [Suspect]
     Active Substance: LENALIDOMIDE
     Indication: MYELODYSPLASTIC SYNDROME
     Route: 048
  2. AZACITIDINE. [Suspect]
     Active Substance: AZACITIDINE
     Indication: MYELODYSPLASTIC SYNDROME
     Route: 058
  3. AZACITIDINE. [Suspect]
     Active Substance: AZACITIDINE
     Route: 058

REACTIONS (20)
  - Disease progression [Fatal]
  - Gamma-glutamyltransferase increased [Unknown]
  - Respiratory tract infection [Unknown]
  - Haemoglobin [Unknown]
  - Thrombocytopenia [Unknown]
  - Infection [Fatal]
  - Hypotension [Unknown]
  - Skin infection [Unknown]
  - Sepsis [Unknown]
  - Rash [Unknown]
  - Death [Fatal]
  - Febrile neutropenia [Unknown]
  - Dyspnoea [Unknown]
  - Adverse event [Unknown]
  - Gastrointestinal disorder [Unknown]
  - Infection [Unknown]
  - Neutropenia [Unknown]
  - Fatigue [Unknown]
  - Haemorrhage [Fatal]
  - Syncope [Unknown]
